FAERS Safety Report 23211405 (Version 1)
Quarter: 2023Q4

REPORT INFORMATION
  Report Type: Spontaneous
  Country: ES (occurrence: ES)
  Receive Date: 20231121
  Receipt Date: 20231121
  Transmission Date: 20240109
  Serious: Yes (Other)
  Sender: FDA-Public Use
  Company Number: ES-SA-2023SA356539

PATIENT
  Age: 64 Year
  Sex: Male

DRUGS (8)
  1. ISATUXIMAB [Suspect]
     Active Substance: ISATUXIMAB
     Indication: Plasma cell myeloma
     Dosage: AFTER 9.3 ML (20.51 MG) EVENT OCCURED
     Dates: start: 202304
  2. ISATUXIMAB [Suspect]
     Active Substance: ISATUXIMAB
     Dosage: 620 MG  IN 250 ML OF NORMAL SALINE FOR A TOTAL VOLUME OF 281 ML.
     Dates: start: 202304
  3. ISATUXIMAB [Suspect]
     Active Substance: ISATUXIMAB
     Dosage: FOUR CYCLES
     Dates: start: 202206, end: 202210
  4. CARFILZOMIB [Concomitant]
     Active Substance: CARFILZOMIB
     Indication: Plasma cell myeloma
     Dosage: FOUR CYCLES
     Dates: start: 202206, end: 202210
  5. CARFILZOMIB [Concomitant]
     Active Substance: CARFILZOMIB
     Dosage: THE FIRST CYCLE OF RE-TREATMENT
     Dates: start: 202304
  6. DEXAMETHASONE [Concomitant]
     Active Substance: DEXAMETHASONE
     Indication: Plasma cell myeloma
     Dosage: FOUR CYCLES
     Dates: start: 202206, end: 202210
  7. DEXAMETHASONE [Concomitant]
     Active Substance: DEXAMETHASONE
     Dosage: THE FIRST CYCLE OF RE-TREATMENT
     Dates: start: 202304
  8. SODIUM CHLORIDE [Concomitant]
     Active Substance: SODIUM CHLORIDE
     Dosage: 620 MG OF ISATUXIMAB IN 250 ML OF NORMAL SALINE FOR A TOTAL VOLUME OF 281 ML.
     Dates: start: 202304

REACTIONS (9)
  - Anaphylactic shock [Recovered/Resolved]
  - Pruritus [Recovered/Resolved]
  - Flushing [Recovered/Resolved]
  - Rash [Recovered/Resolved]
  - Urticaria [Recovered/Resolved]
  - Vision blurred [Recovered/Resolved]
  - Chills [Recovered/Resolved]
  - Condition aggravated [Recovered/Resolved]
  - Syncope [Recovered/Resolved]
